FAERS Safety Report 9796244 (Version 1)
Quarter: 2014Q1

REPORT INFORMATION
  Report Type: Spontaneous
  Country: US (occurrence: US)
  Receive Date: 20140103
  Receipt Date: 20140103
  Transmission Date: 20141002
  Serious: Yes (Hospitalization, Other)
  Sender: FDA-Public Use
  Company Number: US-JNJFOC-20140100104

PATIENT
  Age: 58 Year
  Sex: Female
  Weight: 63.5 kg

DRUGS (10)
  1. ELMIRON [Suspect]
     Indication: CYSTITIS INTERSTITIAL
     Route: 048
  2. SAVELLA [Concomitant]
     Indication: FIBROMYALGIA
     Route: 048
     Dates: start: 2011
  3. BENICAR [Concomitant]
     Indication: HYPERTENSION
     Route: 048
  4. SYNTHROID [Concomitant]
     Indication: THYROID DISORDER
     Route: 048
     Dates: start: 1984
  5. LIPOFENE [Concomitant]
     Indication: BLOOD CHOLESTEROL ABNORMAL
     Route: 048
     Dates: start: 2012, end: 201312
  6. NEURONTIN [Concomitant]
     Indication: PAIN
     Route: 048
     Dates: start: 200704
  7. MYRBETRIQ [Concomitant]
     Indication: PROPHYLAXIS
     Route: 048
     Dates: start: 201308
  8. ATARAX [Concomitant]
     Indication: NERVOUS SYSTEM DISORDER
     Route: 048
  9. ACIPHEX [Concomitant]
     Indication: GASTROOESOPHAGEAL REFLUX DISEASE
     Route: 048
  10. CYMBALTA [Concomitant]
     Indication: FIBROMYALGIA
     Dosage: 1 TABLET IN MORNING AND 1 TABLET IN EVENING
     Route: 048
     Dates: start: 2011

REACTIONS (3)
  - Abdominal mass [Not Recovered/Not Resolved]
  - Blood pressure decreased [Recovered/Resolved]
  - Red blood cell count decreased [Not Recovered/Not Resolved]
